FAERS Safety Report 6744172-2 (Version None)
Quarter: 2010Q2

REPORT INFORMATION
  Report Type: 
  Country: None (occurrence: None)
  Receive Date: 20100527
  Receipt Date: 20100518
  Transmission Date: 20101027
  Serious: Yes (Other)
  Sender: FDA-Public Use
  Company Number: US-SANOFI-AVENTIS-2010SA012680

PATIENT
  Age: 60 Year
  Sex: Female
  Weight: 68.18 kg

DRUGS (5)
  1. MULTAQ [Suspect]
     Route: 048
     Dates: end: 20100305
  2. ZETIA [Concomitant]
     Route: 048
  3. LASIX [Concomitant]
     Route: 048
  4. PLAVIX [Concomitant]
     Route: 048
  5. ASPIRIN [Concomitant]
     Route: 048

REACTIONS (9)
  - BRADYARRHYTHMIA [None]
  - CHEST PAIN [None]
  - ELECTROCARDIOGRAM QT PROLONGED [None]
  - GASTROOESOPHAGEAL REFLUX DISEASE [None]
  - HEART RATE INCREASED [None]
  - PALPITATIONS [None]
  - SICK SINUS SYNDROME [None]
  - SINUS ARREST [None]
  - TACHYARRHYTHMIA [None]
